FAERS Safety Report 24606773 (Version 1)
Quarter: 2024Q4

REPORT INFORMATION
  Report Type: Spontaneous
  Country: US (occurrence: US)
  Receive Date: 20241112
  Receipt Date: 20241112
  Transmission Date: 20250115
  Serious: Yes (Hospitalization, Other)
  Sender: CHEPLAPHARM
  Company Number: US-CHEPLA-2024014098

PATIENT
  Age: 24 Year
  Sex: Male

DRUGS (4)
  1. OLANZAPINE [Suspect]
     Active Substance: OLANZAPINE
     Indication: Schizoaffective disorder
     Dosage: NIGHTLY?DAILY DOSE: 20 MILLIGRAM
  2. RISPERIDONE [Suspect]
     Active Substance: RISPERIDONE
  3. FLUOXETINE [Suspect]
     Active Substance: FLUOXETINE HYDROCHLORIDE
     Dosage: DAILY DOSE: 40 MILLIGRAM
  4. TRAZODONE [Suspect]
     Active Substance: TRAZODONE HYDROCHLORIDE
     Dosage: NIGHTLY?DAILY DOSE: 100 MILLIGRAM

REACTIONS (8)
  - Pancreatitis acute [Unknown]
  - Diabetic ketoacidosis [Unknown]
  - Steatohepatitis [Unknown]
  - Condition aggravated [Unknown]
  - Insomnia [Unknown]
  - Increased appetite [Unknown]
  - Weight increased [Unknown]
  - Blood triglycerides increased [Unknown]
